FAERS Safety Report 5190763-2 (Version None)
Quarter: 2006Q4

REPORT INFORMATION
  Report Type: 
  Country: None (occurrence: None)
  Receive Date: 20061222
  Receipt Date: 20061218
  Transmission Date: 20070319
  Serious: Yes (Other)
  Sender: FDA-Public Use
  Company Number: CA-BRISTOL-MYERS SQUIBB COMPANY-13617238

PATIENT

DRUGS (1)
  1. METHOTREXATE [Suspect]
     Indication: SQUAMOUS CELL CARCINOMA

REACTIONS (1)
  - TUMOUR HAEMORRHAGE [None]
